FAERS Safety Report 14260080 (Version 1)
Quarter: 2017Q4

REPORT INFORMATION
  Report Type: Spontaneous
  Country: US (occurrence: US)
  Receive Date: 20171207
  Receipt Date: 20171207
  Transmission Date: 20180321
  Serious: No
  Sender: FDA-Public Use
  Company Number: US-ASTRAZENECA-2000AU01298

PATIENT
  Age: 511 Month
  Sex: Female

DRUGS (5)
  1. PULMICORT TURBUHALER [Suspect]
     Active Substance: BUDESONIDE
     Indication: ASTHMA
     Dosage: DOSE: 400 MCG TOTAL DAILY DOSE: 800 MCG
     Route: 055
     Dates: start: 199903
  2. SINGULAIR [Concomitant]
     Active Substance: MONTELUKAST SODIUM
  3. VENTOLIN HSA [Concomitant]
     Indication: INHALATION THERAPY
     Dosage: PRN
  4. PULMICORT TURBUHALER [Suspect]
     Active Substance: BUDESONIDE
     Indication: ASTHMA
     Dosage: 180 MCG ONE INHALATION TWICE A DAY
     Route: 055
  5. SERAVENT DISCUS [Concomitant]
     Indication: ASTHMA

REACTIONS (3)
  - Drug ineffective [Unknown]
  - Asthma [Unknown]
  - Inability to afford medication [Not Recovered/Not Resolved]

NARRATIVE: CASE EVENT DATE: 199912
